FAERS Safety Report 7610017-1 (Version None)
Quarter: 2011Q3

REPORT INFORMATION
  Report Type: 
  Country: None (occurrence: None)
  Receive Date: 20110714
  Receipt Date: 20110217
  Transmission Date: 20111222
  Serious: No
  Sender: FDA-Public Use
  Company Number: US-BAYER-2011-016902

PATIENT
  Sex: Male

DRUGS (1)
  1. FINACEA [Suspect]
     Dosage: UNK
     Dates: start: 19960101

REACTIONS (3)
  - SKIN DISCOLOURATION [None]
  - RASH [None]
  - ROSACEA [None]
